FAERS Safety Report 10190809 (Version 3)
Quarter: 2014Q2

REPORT INFORMATION
  Report Type: Report from Study
  Country: AU (occurrence: AU)
  Receive Date: 20140523
  Receipt Date: 20140602
  Transmission Date: 20141212
  Serious: Yes (Other)
  Sender: FDA-Public Use
  Company Number: PHHY2014AU059121

PATIENT
  Age: 76 Year
  Sex: Male

DRUGS (2)
  1. ACLASTA [Suspect]
     Dosage: 5 MG, UNK
     Route: 042
     Dates: start: 20120516
  2. ACLASTA [Suspect]
     Dosage: 5 MG, UNK
     Route: 042
     Dates: start: 20130621

REACTIONS (10)
  - Type 2 diabetes mellitus [Unknown]
  - Osteitis deformans [Unknown]
  - Vitamin D decreased [Unknown]
  - Anion gap increased [Unknown]
  - Blood alkaline phosphatase abnormal [Unknown]
  - Blood iron decreased [Unknown]
  - Blood urea increased [Unknown]
  - Transferrin saturation decreased [Unknown]
  - Blood bilirubin increased [Unknown]
  - Protein total increased [Unknown]
